FAERS Safety Report 25190888 (Version 2)
Quarter: 2025Q2

REPORT INFORMATION
  Report Type: Report from Study
  Country: CO (occurrence: CO)
  Receive Date: 20250411
  Receipt Date: 20250421
  Transmission Date: 20250717
  Serious: Yes (Hospitalization)
  Sender: NOVARTIS
  Company Number: CO-002147023-NVSC2022CO243914

PATIENT
  Age: 56 Year
  Sex: Male
  Weight: 71 kg

DRUGS (7)
  1. TASIGNA [Suspect]
     Active Substance: NILOTINIB
     Indication: Chronic myeloid leukaemia
     Dosage: 300 MG, Q12H
     Route: 048
     Dates: start: 20211221
  2. TASIGNA [Suspect]
     Active Substance: NILOTINIB
     Dosage: 200 MG, Q12H
     Route: 048
  3. TASIGNA [Suspect]
     Active Substance: NILOTINIB
     Dosage: 150 MG, Q12H (EVERY 12 HOURS/ IN THE MORNING AND AT NIGHT)
     Route: 048
     Dates: start: 20220107
  4. TASIGNA [Suspect]
     Active Substance: NILOTINIB
     Dosage: 150 MG, QD
     Route: 065
     Dates: start: 20250404
  5. TASIGNA [Suspect]
     Active Substance: NILOTINIB
     Route: 048
  6. TASIGNA [Suspect]
     Active Substance: NILOTINIB
     Dosage: 150 MG, QD
     Route: 048
  7. PREGABALIN [Concomitant]
     Active Substance: PREGABALIN
     Indication: Product used for unknown indication
     Dosage: 50 MG, QD
     Route: 065

REACTIONS (9)
  - Chest pain [Unknown]
  - Chest discomfort [Unknown]
  - Myalgia [Unknown]
  - Pain in extremity [Unknown]
  - Liver disorder [Unknown]
  - Blood bilirubin increased [Unknown]
  - Pain [Unknown]
  - Discomfort [Unknown]
  - Off label use [Unknown]

NARRATIVE: CASE EVENT DATE: 20220901
